FAERS Safety Report 11719923 (Version 1)
Quarter: 2015Q4

REPORT INFORMATION
  Report Type: Spontaneous
  Country: CA (occurrence: CA)
  Receive Date: 20151110
  Receipt Date: 20151110
  Transmission Date: 20160304
  Serious: Yes (Life-Threatening, Hospitalization, Other)
  Sender: FDA-Public Use
  Company Number: CA-MALLINCKRODT-T201505150

PATIENT
  Age: 53 Year
  Sex: Male

DRUGS (5)
  1. QUETIAPINE [Concomitant]
     Active Substance: QUETIAPINE
  2. RABEPRAZOLE [Concomitant]
     Active Substance: RABEPRAZOLE
  3. METHADOSE [Suspect]
     Active Substance: METHADONE HYDROCHLORIDE
     Indication: DEPENDENCE
     Dosage: 220 MG, QD
     Route: 065
  4. ASPIRIN. [Concomitant]
     Active Substance: ASPIRIN
  5. METHADOSE [Suspect]
     Active Substance: METHADONE HYDROCHLORIDE
     Dosage: SLIT QUATERLY DOSE (55 MG)

REACTIONS (6)
  - Cardiac arrest [Recovered/Resolved]
  - Torsade de pointes [Recovered/Resolved]
  - Ventricular fibrillation [Recovered/Resolved]
  - Sinus bradycardia [Recovered/Resolved]
  - Long QT syndrome [Recovered/Resolved]
  - Circulatory collapse [Recovered/Resolved]
